FAERS Safety Report 14293229 (Version 10)
Quarter: 2018Q3

REPORT INFORMATION
  Report Type: Report from Study
  Country: US (occurrence: US)
  Receive Date: 20171215
  Receipt Date: 20180807
  Transmission Date: 20181010
  Serious: Yes (Death, Hospitalization)
  Sender: FDA-Public Use
  Company Number: US-ACTELION-A-NJ2017-164311

PATIENT
  Age: 56 Year
  Sex: Female
  Weight: 74.83 kg

DRUGS (20)
  1. UPTRAVI [Suspect]
     Active Substance: SELEXIPAG
     Dosage: 600 MCG, BID
     Route: 048
     Dates: start: 201610
  2. FUROSEMIDE. [Concomitant]
     Active Substance: FUROSEMIDE
     Dosage: 80 MG, BID
  3. METOLAZONE. [Concomitant]
     Active Substance: METOLAZONE
     Dosage: 5 MG, 3 TIMES WEEKLY
  4. UPTRAVI [Suspect]
     Active Substance: SELEXIPAG
     Indication: PULMONARY HYPERTENSION
     Dosage: 1200 MCG, BID
     Route: 048
     Dates: end: 20180628
  5. SILDENAFIL. [Concomitant]
     Active Substance: SILDENAFIL
     Dosage: 20 MG, TID
     Route: 048
  6. ASPIRIN. [Concomitant]
     Active Substance: ASPIRIN
     Dosage: 81 MG, QD
     Route: 048
  7. TORSEMIDE. [Concomitant]
     Active Substance: TORSEMIDE
     Dosage: 20 MG, BID
     Route: 048
  8. UPTRAVI [Suspect]
     Active Substance: SELEXIPAG
     Dosage: 1000 MCG, BID
     Route: 048
     Dates: start: 201610
  9. UPTRAVI [Suspect]
     Active Substance: SELEXIPAG
     Dosage: 800 MCG, BID
     Route: 048
  10. ALBUTEROL. [Concomitant]
     Active Substance: ALBUTEROL
     Dosage: 2.5 MG/3ML
     Route: 055
  11. OXYCODONE [Concomitant]
     Active Substance: OXYCODONE
     Dosage: 10 MG, EVERY 4 HOURS
     Route: 048
  12. TRACLEER [Suspect]
     Active Substance: BOSENTAN
     Indication: PULMONARY HYPERTENSION
     Dosage: 125 MG, BID
     Route: 048
     Dates: start: 201610, end: 20180628
  13. FUROSEMIDE. [Concomitant]
     Active Substance: FUROSEMIDE
     Dosage: 2 TABS IN AM, 1 IN PM
  14. FUROSEMIDE. [Concomitant]
     Active Substance: FUROSEMIDE
     Dosage: 320 UNK, UNK
  15. AMILORIDE [Concomitant]
     Active Substance: AMILORIDE
     Dosage: 10 UNK, UNK
  16. AMILORIDE [Concomitant]
     Active Substance: AMILORIDE
     Dosage: 5 MG, QD
  17. HYDROCORTISONE. [Concomitant]
     Active Substance: HYDROCORTISONE
     Dosage: 10 MG, BID
  18. POTASSIUM CHLORIDE. [Concomitant]
     Active Substance: POTASSIUM CHLORIDE
     Dosage: 20 MG, BID
  19. POLYETHYLENE GLYCOL 3350. [Concomitant]
     Active Substance: POLYETHYLENE GLYCOL 3350
  20. CHOLECALCIFEROL [Concomitant]
     Active Substance: CHOLECALCIFEROL
     Dosage: 1000 IU, QD
     Route: 048

REACTIONS (31)
  - Pneumonia [Unknown]
  - Sepsis [Unknown]
  - Chronic kidney disease [Unknown]
  - Cardiac failure congestive [Unknown]
  - Cor pulmonale [Unknown]
  - Malaise [Unknown]
  - Right ventricular failure [Fatal]
  - Road traffic accident [Unknown]
  - Chest pain [Unknown]
  - Abdominal pain upper [Recovering/Resolving]
  - Hypotension [Unknown]
  - Heart rate increased [Unknown]
  - Pyrexia [Unknown]
  - Adrenal insufficiency [Unknown]
  - Decreased appetite [Recovering/Resolving]
  - Cardiac failure [Unknown]
  - Dyspnoea [Recovering/Resolving]
  - Drug intolerance [Unknown]
  - Flatulence [Recovering/Resolving]
  - Oedema peripheral [Recovering/Resolving]
  - Fatigue [Recovering/Resolving]
  - Arthralgia [Recovering/Resolving]
  - Nausea [Recovering/Resolving]
  - Headache [Recovering/Resolving]
  - Dizziness [Recovering/Resolving]
  - Weight increased [Unknown]
  - Drug dose omission [Unknown]
  - Pulmonary hypertension [Fatal]
  - Oxygen therapy [Unknown]
  - Supraventricular tachycardia [Unknown]
  - Pulmonary sarcoidosis [Unknown]

NARRATIVE: CASE EVENT DATE: 20171118
